FAERS Safety Report 4405285-3 (Version None)
Quarter: 2004Q3

REPORT INFORMATION
  Report Type: 
  Country: None (occurrence: None)
  Receive Date: 20040716
  Receipt Date: 20040707
  Transmission Date: 20050211
  Serious: Yes (Other)
  Sender: FDA-Public Use
  Company Number: 2004-07-0206

PATIENT
  Age: 17 Year
  Sex: Female

DRUGS (5)
  1. AERIUS (DESLORATADINE) TABLETS ' LIKE CLARINEX' [Suspect]
     Indication: EYELID OEDEMA
     Dosage: 5 MG QD ORAL
     Route: 048
     Dates: start: 20040503, end: 20040510
  2. AMODEX TABLETS [Suspect]
     Indication: PHARYNGOLARYNGEAL PAIN
     Dosage: 500 MG BID ORAL
     Route: 048
     Dates: start: 20040428, end: 20040510
  3. APRAMAX TABLETS [Suspect]
     Indication: PHARYNGOLARYNGEAL PAIN
     Dosage: 1 TAB BID ORAL
     Route: 048
     Dates: start: 20040428, end: 20040510
  4. DERINOX NASAL SOLUTION [Suspect]
     Indication: PHARYNGOLARYNGEAL PAIN
     Dosage: PUFF TID
     Dates: start: 20040428, end: 20040510
  5. NEXIUM TABLETS (ESOMEPRAZOLE) [Suspect]
     Indication: ABDOMINAL PAIN UPPER
     Dosage: 20 MG QD ORAL
     Route: 048
     Dates: start: 20040503, end: 20040510

REACTIONS (1)
  - HEPATITIS [None]
